FAERS Safety Report 6943594-4 (Version None)
Quarter: 2010Q3

REPORT INFORMATION
  Report Type: 
  Country: None (occurrence: None)
  Receive Date: 20100826
  Receipt Date: 20100824
  Transmission Date: 20110219
  Serious: Yes (Hospitalization)
  Sender: FDA-Public Use
  Company Number: FR-WYE-G06577310

PATIENT
  Age: 56 Year
  Sex: Male

DRUGS (7)
  1. RAPAMUNE [Suspect]
     Indication: PROPHYLAXIS AGAINST TRANSPLANT REJECTION
     Dosage: UNKNOWN
     Route: 048
     Dates: start: 20100410, end: 20100724
  2. TAHOR [Suspect]
     Dosage: UNKNOWN
     Route: 048
     Dates: start: 20100301
  3. CORDARONE [Concomitant]
     Dosage: UNKNOWN
     Route: 048
     Dates: start: 20100501
  4. LASIX [Concomitant]
     Dosage: UNKNOWN
     Route: 048
     Dates: start: 20100501
  5. RIVOTRIL [Concomitant]
     Dosage: UNKNOWN
     Route: 048
     Dates: start: 20100501
  6. ZYLORIC [Suspect]
     Dosage: UNKNOWN
     Route: 048
     Dates: start: 20100301, end: 20100101
  7. BISOPROLOL [Concomitant]
     Dosage: UNKNOWN
     Route: 048
     Dates: start: 20100601

REACTIONS (1)
  - DRUG RASH WITH EOSINOPHILIA AND SYSTEMIC SYMPTOMS [None]
